FAERS Safety Report 9557216 (Version 1)
Quarter: 2013Q3

REPORT INFORMATION
  Report Type: Spontaneous
  Country: US (occurrence: None)
  Receive Date: 20130724
  Receipt Date: 20130724
  Transmission Date: 20140515
  Serious: Yes (Hospitalization)
  Sender: FDA-Public Use
  Company Number: PHEH2013US007561

PATIENT
  Age: 41 Year
  Sex: Female
  Weight: 68 kg

DRUGS (6)
  1. GILENYA [Suspect]
     Indication: RELAPSING-REMITTING MULTIPLE SCLEROSIS
     Route: 048
     Dates: start: 112011, end: 201303
  2. LEXAPRO [Concomitant]
  3. LYRICA [Concomitant]
  4. METOPROLOL [Concomitant]
  5. NORETHINDRONE [Concomitant]
  6. NORTRIPTYLINE [Concomitant]

REACTIONS (2)
  - Pneumonia [None]
  - Dyspnoea [None]
